FAERS Safety Report 10279867 (Version 1)
Quarter: 2014Q3

REPORT INFORMATION
  Report Type: Spontaneous
  Country: JP (occurrence: None)
  Receive Date: 20140701
  Receipt Date: 20140701
  Transmission Date: 20150326
  Serious: Yes (Hospitalization)
  Sender: FDA-Public Use
  Company Number: CC400222776

PATIENT
  Age: 79 Year
  Sex: Male

DRUGS (2)
  1. CEFTRIAXONE. [Suspect]
     Active Substance: CEFTRIAXONE
     Indication: PERICARDITIS INFECTIVE
     Dosage: 2G/DAY, 4G/DAY IV
     Route: 042
  2. AMIKACIN [Concomitant]
     Active Substance: AMIKACIN

REACTIONS (6)
  - Haematuria [None]
  - Renal impairment [None]
  - Pyelocaliectasis [None]
  - Blood creatinine increased [None]
  - Anuria [None]
  - Calculus urinary [None]
